FAERS Safety Report 16628440 (Version 3)
Quarter: 2019Q3

REPORT INFORMATION
  Report Type: Report from Study
  Country: None (occurrence: AU)
  Receive Date: 20190724
  Receipt Date: 20190808
  Transmission Date: 20191004
  Serious: Yes (Hospitalization)
  Sender: FDA-Public Use
  Company Number: AU-ABBVIE-19P-008-2714779-00

PATIENT
  Age: 29 Year
  Sex: Female
  Weight: 72 kg

DRUGS (2)
  1. HUMIRA [Suspect]
     Active Substance: ADALIMUMAB
     Indication: COLITIS ULCERATIVE
     Route: 058
     Dates: start: 20181215
  2. SULFASALAZINE. [Concomitant]
     Active Substance: SULFASALAZINE
     Indication: COLITIS ULCERATIVE
     Route: 048
     Dates: start: 20170301

REACTIONS (4)
  - Live birth [Unknown]
  - Pelvic pain [Not Recovered/Not Resolved]
  - Exposure during pregnancy [Unknown]
  - Localised oedema [Not Recovered/Not Resolved]

NARRATIVE: CASE EVENT DATE: 20190718
